FAERS Safety Report 13821417 (Version 2)
Quarter: 2017Q4

REPORT INFORMATION
  Report Type: Spontaneous
  Country: FR (occurrence: FR)
  Receive Date: 20170801
  Receipt Date: 20171102
  Transmission Date: 20180320
  Serious: Yes (Hospitalization, Other)
  Sender: FDA-Public Use
  Company Number: FR-009507513-1707FRA010754

PATIENT
  Age: 29 Year
  Sex: Female

DRUGS (7)
  1. ORGALUTRAN [Suspect]
     Active Substance: GANIRELIX ACETATE
     Indication: ASSISTED FERTILISATION
     Dosage: 0.25 MG, QD, STRENGTH: 0.25 MG/0.5 ML
     Route: 058
     Dates: start: 20170622, end: 20170625
  2. GONAL-F [Suspect]
     Active Substance: FOLLITROPIN
     Dosage: 400 IU, QD
     Route: 058
     Dates: start: 20170622, end: 20170622
  3. GONAL-F [Suspect]
     Active Substance: FOLLITROPIN
     Indication: ASSISTED FERTILISATION
     Dosage: 450 IU, QD
     Route: 058
     Dates: start: 20170616, end: 20170621
  4. DECAPEPTYL (TRIPTORELIN PAMOATE) [Suspect]
     Active Substance: TRIPTORELIN PAMOATE
     Indication: ASSISTED FERTILISATION
     Dosage: 0.1 MG, 1 SINGLE DOSE
     Route: 058
     Dates: start: 20170626, end: 20170626
  5. GONAL-F [Suspect]
     Active Substance: FOLLITROPIN
     Dosage: 325 IU, QD
     Route: 058
     Dates: start: 20170623, end: 20170623
  6. GONAL-F [Suspect]
     Active Substance: FOLLITROPIN
     Dosage: 250 IU, QD
     Route: 058
     Dates: start: 20170625, end: 20170625
  7. GONAL-F [Suspect]
     Active Substance: FOLLITROPIN
     Dosage: 200 IU, QD
     Route: 058
     Dates: start: 20170624, end: 20170624

REACTIONS (2)
  - Ovarian hyperstimulation syndrome [Recovered/Resolved]
  - Peritoneal haemorrhage [Recovered/Resolved]

NARRATIVE: CASE EVENT DATE: 20170628
